FAERS Safety Report 4868600-2 (Version None)
Quarter: 2005Q4

REPORT INFORMATION
  Report Type: 
  Country: None (occurrence: None)
  Receive Date: 20051223
  Receipt Date: 20051215
  Transmission Date: 20060501
  Serious: Yes (Hospitalization)
  Sender: FDA-Public Use
  Company Number: 13111

PATIENT
  Age: 46 Year
  Sex: Male

DRUGS (5)
  1. METHOTREXATE [Suspect]
     Indication: RHEUMATOID ARTHRITIS
     Dosage: 30 MG WEEKLY IM
     Route: 030
     Dates: start: 19960101, end: 20050512
  2. REMICADE [Suspect]
     Indication: RHEUMATOID ARTHRITIS
     Dosage: 300 MG PER_CYCLE IV
     Route: 042
     Dates: start: 20040401, end: 20050512
  3. PREDNISOLONE [Concomitant]
  4. OXIKLORIN [Concomitant]
  5. MYOCRISIN [Concomitant]

REACTIONS (5)
  - BURSITIS [None]
  - HAEMOGLOBIN INCREASED [None]
  - MUSCLE ABSCESS [None]
  - PLATELET COUNT DECREASED [None]
  - SYNOVITIS [None]
